FAERS Safety Report 9185981 (Version 2)
Quarter: 2013Q3

REPORT INFORMATION
  Report Type: Spontaneous
  Country: US (occurrence: None)
  Receive Date: 20120628
  Receipt Date: 20130724
  Transmission Date: 20140515
  Serious: Yes (Other)
  Sender: FDA-Public Use
  Company Number: PHEH2012US008986

PATIENT
  Age: 67 Year
  Sex: Female

DRUGS (1)
  1. RECLAST [Suspect]
     Indication: OSTEOPOROSIS
     Route: 042
     Dates: start: 20120426

REACTIONS (6)
  - Blood pressure systolic increased [None]
  - Tinnitus [None]
  - Paraesthesia [None]
  - Balance disorder [None]
  - Muscular weakness [None]
  - Arthralgia [None]
